FAERS Safety Report 7557267-0 (Version None)
Quarter: 2011Q2

REPORT INFORMATION
  Report Type: 
  Country: None (occurrence: None)
  Receive Date: 20110620
  Receipt Date: 20070322
  Transmission Date: 20111010
  Serious: Yes (Hospitalization, Other)
  Sender: FDA-Public Use
  Company Number: PHEH2007US03451

PATIENT
  Sex: Female

DRUGS (5)
  1. OXYCONTIN [Concomitant]
     Indication: PAIN
  2. FERROUS SULFATE TAB [Concomitant]
  3. ORTHO-NOVUM [Concomitant]
     Indication: CONTRACEPTION
  4. EXJADE [Suspect]
     Indication: HAEMOCHROMATOSIS
     Dosage: 1500 MG, QD
     Route: 048
     Dates: start: 20060518
  5. TYLOX [Concomitant]
     Indication: BREAKTHROUGH PAIN

REACTIONS (20)
  - PAIN IN EXTREMITY [None]
  - DRUG EXPOSURE DURING PREGNANCY [None]
  - RETICULOCYTE COUNT INCREASED [None]
  - HAEMOGLOBIN DECREASED [None]
  - CARDIAC MURMUR [None]
  - LYMPHOCYTE COUNT DECREASED [None]
  - PLATELET COUNT INCREASED [None]
  - RED CELL DISTRIBUTION WIDTH INCREASED [None]
  - NEUTROPHIL COUNT INCREASED [None]
  - HAEMATOCRIT DECREASED [None]
  - BONE INFARCTION [None]
  - MONOCYTE COUNT INCREASED [None]
  - BLOOD ALBUMIN DECREASED [None]
  - BODY TEMPERATURE INCREASED [None]
  - TACHYCARDIA [None]
  - SICKLE CELL ANAEMIA WITH CRISIS [None]
  - BONE SCAN ABNORMAL [None]
  - ABORTION [None]
  - BLOOD BILIRUBIN INCREASED [None]
  - WHITE BLOOD CELL COUNT INCREASED [None]
